FAERS Safety Report 8505391-8 (Version None)
Quarter: 2012Q2

REPORT INFORMATION
  Report Type: 
  Country: None (occurrence: None)
  Receive Date: 20120405
  Receipt Date: 20091019
  Transmission Date: 20120825
  Serious: Yes (Other)
  Sender: FDA-Public Use
  Company Number: PHEH2009US14076

PATIENT
  Age: 74 Year
  Sex: Female

DRUGS (19)
  1. AMBIEN [Concomitant]
  2. ASPIRIN [Concomitant]
  3. DETROL [Concomitant]
  4. MIRALAX [Concomitant]
  5. MULTI-VITAMINS [Concomitant]
  6. VIACTIV (CALCIUM, COLECALCIFEROL) [Concomitant]
  7. ALBUTEROL [Concomitant]
  8. CLONIDINE [Concomitant]
  9. IMDUR [Concomitant]
  10. EFEXOR XR (VENLAFAXINE) [Concomitant]
  11. SPIRIVA [Concomitant]
  12. THYROID TAB [Concomitant]
  13. LISINOPRIL [Concomitant]
  14. SYMBICORT [Concomitant]
  15. RECLAST [Suspect]
     Dosage: , INFUSION
     Dates: start: 20090408
  16. BUMEX [Concomitant]
  17. HYDROCORTISONE [Concomitant]
  18. NEXIUM [Concomitant]
  19. SINGULAIR [Concomitant]

REACTIONS (2)
  - MYALGIA [None]
  - ARTHRALGIA [None]
